FAERS Safety Report 9401830 (Version 4)
Quarter: 2013Q4

REPORT INFORMATION
  Report Type: Report from Study
  Country: JP (occurrence: JP)
  Receive Date: 20130716
  Receipt Date: 20131129
  Transmission Date: 20140711
  Serious: Yes (Other)
  Sender: FDA-Public Use
  Company Number: JP-JNJFOC-20130706982

PATIENT
  Age: 69 Year
  Sex: Female
  Weight: 55 kg

DRUGS (10)
  1. SIMPONI [Suspect]
     Indication: RHEUMATOID ARTHRITIS
     Route: 058
     Dates: start: 20130509, end: 20130509
  2. SIMPONI [Suspect]
     Indication: RHEUMATOID ARTHRITIS
     Route: 058
     Dates: start: 20130405, end: 20130405
  3. METHOTREXATE [Suspect]
     Indication: RHEUMATOID ARTHRITIS
     Route: 048
     Dates: start: 20130712
  4. METHOTREXATE [Suspect]
     Indication: RHEUMATOID ARTHRITIS
     Route: 048
     Dates: start: 20130108, end: 20130612
  5. ISCOTIN [Suspect]
     Indication: PLEURISY
     Route: 048
     Dates: start: 20130613, end: 20130628
  6. ISCOTIN [Suspect]
     Indication: PLEURISY
     Route: 048
     Dates: start: 20130719
  7. LOXONIN [Concomitant]
     Indication: RHEUMATOID ARTHRITIS
     Route: 065
  8. TAKEPRON [Concomitant]
     Indication: GASTROOESOPHAGEAL REFLUX DISEASE
     Route: 048
  9. FERO-GRADUMET [Concomitant]
     Indication: ANAEMIA
     Route: 048
  10. TACROLIMUS [Concomitant]
     Indication: RHEUMATOID ARTHRITIS
     Route: 065
     Dates: start: 20130809, end: 20130822

REACTIONS (2)
  - Pleurisy [Recovering/Resolving]
  - Rash [Recovered/Resolved]
